FAERS Safety Report 15646279 (Version 1)
Quarter: 2018Q4

REPORT INFORMATION
  Report Type: Report from Study
  Country: None (occurrence: US)
  Receive Date: 20181122
  Receipt Date: 20181122
  Transmission Date: 20190205
  Serious: Yes (Hospitalization)
  Sender: FDA-Public Use
  Company Number: US-ABBVIE-18K-163-2533866-00

PATIENT
  Age: 57 Year
  Sex: Female
  Weight: 70.37 kg

DRUGS (4)
  1. HUMIRA [Suspect]
     Active Substance: ADALIMUMAB
     Indication: PSORIASIS
     Route: 058
     Dates: start: 2011
  2. AMLODIPINE [Concomitant]
     Active Substance: AMLODIPINE BESYLATE
     Indication: HYPERTENSION
  3. HUMIRA [Suspect]
     Active Substance: ADALIMUMAB
     Indication: RHEUMATOID ARTHRITIS
  4. ATORVASTATIN [Concomitant]
     Active Substance: ATORVASTATIN
     Indication: BLOOD CHOLESTEROL INCREASED

REACTIONS (6)
  - Ureteric obstruction [Recovered/Resolved]
  - Arthralgia [Recovered/Resolved]
  - Nephrolithiasis [Recovered/Resolved]
  - Nephrolithiasis [Recovered/Resolved]
  - Procedural pain [Recovered/Resolved]
  - Nephrolithiasis [Unknown]

NARRATIVE: CASE EVENT DATE: 20180603
